FAERS Safety Report 20590833 (Version 1)
Quarter: 2022Q1

REPORT INFORMATION
  Report Type: Spontaneous
  Country: US (occurrence: None)
  Receive Date: 20220314
  Receipt Date: 20220314
  Transmission Date: 20220424
  Serious: Yes (Life-Threatening, Other)
  Sender: FDA-Public Use
  Company Number: None

PATIENT
  Age: 52 Year
  Sex: Male
  Weight: 108 kg

DRUGS (5)
  1. LUMASON [Suspect]
     Active Substance: SULFUR HEXAFLUORIDE
     Indication: Echocardiogram
     Dates: start: 20220311, end: 20220311
  2. ADVAIR HFA [Concomitant]
     Active Substance: FLUTICASONE PROPIONATE\SALMETEROL XINAFOATE
  3. LOSARTAN [Concomitant]
     Active Substance: LOSARTAN
  4. KIRKLAND SIGNATURE ALLER FEX [Concomitant]
     Active Substance: FEXOFENADINE HYDROCHLORIDE
  5. KIRKLAND SIGNATURE ALLER FLO [Concomitant]
     Active Substance: FLUTICASONE PROPIONATE

REACTIONS (11)
  - Flushing [None]
  - Dyspnoea [None]
  - Burning sensation [None]
  - Swelling face [None]
  - Obstructive airways disorder [None]
  - Dysgeusia [None]
  - Loss of consciousness [None]
  - Pulse absent [None]
  - Anaphylactic reaction [None]
  - Blood pressure immeasurable [None]
  - Contrast media reaction [None]

NARRATIVE: CASE EVENT DATE: 20220311
